FAERS Safety Report 9385946 (Version 1)
Quarter: 2013Q3

REPORT INFORMATION
  Report Type: Spontaneous
  Country: RU (occurrence: RU)
  Receive Date: 20130705
  Receipt Date: 20130705
  Transmission Date: 20140515
  Serious: Yes (Death)
  Sender: FDA-Public Use
  Company Number: RU-009507513-1307RUS002788

PATIENT
  Age: 70 Year
  Sex: Female

DRUGS (3)
  1. INTEGRILIN [Suspect]
     Indication: ACUTE MYOCARDIAL INFARCTION
     Dosage: UNK
     Route: 042
     Dates: start: 201305, end: 201305
  2. KLEXANE [Concomitant]
     Dosage: 80 MG, BID
     Dates: start: 201305, end: 201305
  3. KLEXANE [Concomitant]
     Dosage: 80 MG, QD
     Dates: start: 201305, end: 201305

REACTIONS (7)
  - Myocardial infarction [Fatal]
  - Cerebrovascular accident [Fatal]
  - Areflexia [Fatal]
  - Haemorrhage [Fatal]
  - Coma [Fatal]
  - Brain oedema [Fatal]
  - Multi-organ failure [Fatal]
